FAERS Safety Report 8162512-7 (Version None)
Quarter: 2012Q1

REPORT INFORMATION
  Report Type: 
  Country: None (occurrence: None)
  Receive Date: 20120221
  Receipt Date: 20120208
  Transmission Date: 20120608
  Serious: Yes (Disabling, Other)
  Sender: FDA-Public Use
  Company Number: 1000028218

PATIENT
  Age: 60 Year
  Sex: Female
  Weight: 49.9 kg

DRUGS (6)
  1. PREMARIN [Suspect]
     Dosage: 0.625 MG (0.625 MG, 1 IN 1 D), ORAL
     Route: 048
  2. TOPAMAX [Suspect]
     Indication: EPILEPSY
     Dosage: 300 MG (100 MG QAM AND 200 MG QPM),ORAL
     Route: 048
  3. LEXAPRO [Suspect]
     Indication: DEPRESSION
     Dosage: 20 MG (20 MG, 1 IN 1 D)
  4. VIMPAT [Suspect]
     Indication: EPILEPSY
     Dosage: 400 MG (100 MG, 4 IN 1 D),ORAL
     Route: 048
  5. LAMICTAL [Suspect]
     Indication: EPILEPSY
     Dosage: 300 MG (150 MG, 2 IN 1 D), ORAL
     Route: 048
  6. PROVERA [Suspect]
     Dosage: 10 MG (10 MG, 1 IN 1 D),ORAL, 20 YEARS AGO
     Route: 048

REACTIONS (6)
  - BALANCE DISORDER [None]
  - DRUG INEFFECTIVE [None]
  - EPILEPSY [None]
  - SOMNOLENCE [None]
  - DRUG INTERACTION [None]
  - TREMOR [None]
